FAERS Safety Report 11006179 (Version 1)
Quarter: 2015Q2

REPORT INFORMATION
  Report Type: Spontaneous
  Country: US (occurrence: US)
  Receive Date: 20150409
  Receipt Date: 20150409
  Transmission Date: 20150821
  Serious: No
  Sender: FDA-Public Use
  Company Number: US-ALLERGAN-1406120US

PATIENT
  Age: 31 Year
  Sex: Female

DRUGS (1)
  1. LATISSE [Suspect]
     Active Substance: BIMATOPROST
     Indication: GROWTH OF EYELASHES
     Dosage: UNK UNK, SINGLE
     Route: 061

REACTIONS (6)
  - Blindness [Unknown]
  - Incorrect dose administered [Unknown]
  - Anxiety [Unknown]
  - Panic disorder [Unknown]
  - Wrong technique in drug usage process [Unknown]
  - Burning sensation [Unknown]
